FAERS Safety Report 10075595 (Version 1)
Quarter: 2014Q2

REPORT INFORMATION
  Report Type: Spontaneous
  Country: US (occurrence: None)
  Receive Date: 20140411
  Receipt Date: 20140411
  Transmission Date: 20141212
  Serious: Yes (Other)
  Sender: FDA-Public Use
  Company Number: None

PATIENT
  Age: 63 Year
  Sex: Male
  Weight: 85.2 kg

DRUGS (1)
  1. ROCURONIUM BROMIDE [Suspect]
     Indication: SURGERY
     Dates: start: 20131223, end: 20131223

REACTIONS (2)
  - Hypotension [None]
  - Anaphylactoid reaction [None]
